FAERS Safety Report 11658690 (Version 1)
Quarter: 2015Q4

REPORT INFORMATION
  Report Type: Spontaneous
  Country: JP (occurrence: JP)
  Receive Date: 20151026
  Receipt Date: 20151026
  Transmission Date: 20160304
  Serious: Yes (Other)
  Sender: FDA-Public Use
  Company Number: PHJP2015JP018308

PATIENT
  Age: 59 Year
  Sex: Female

DRUGS (1)
  1. NEORAL [Suspect]
     Active Substance: CYCLOSPORINE
     Indication: APLASTIC ANAEMIA
     Dosage: UNK
     Route: 048

REACTIONS (4)
  - Visual impairment [Unknown]
  - Headache [Recovering/Resolving]
  - Off label use [Unknown]
  - Reversible cerebral vasoconstriction syndrome [Recovering/Resolving]
